FAERS Safety Report 8330542-8 (Version None)
Quarter: 2012Q2

REPORT INFORMATION
  Report Type: 
  Country: None (occurrence: None)
  Receive Date: 20120502
  Receipt Date: 20120404
  Transmission Date: 20120825
  Serious: No
  Sender: FDA-Public Use
  Company Number: US-AMGEN-USASP2012021326

PATIENT
  Age: 42 Year
  Sex: Male

DRUGS (1)
  1. ENBREL [Suspect]
     Indication: PSORIASIS
     Dosage: 50 MG, QWK
     Dates: start: 20110430

REACTIONS (5)
  - PSORIASIS [None]
  - ABDOMINAL PAIN [None]
  - OCULAR ICTERUS [None]
  - THERAPEUTIC RESPONSE DECREASED [None]
  - HEPATIC ENZYME INCREASED [None]
